FAERS Safety Report 10552579 (Version 2)
Quarter: 2014Q4

REPORT INFORMATION
  Report Type: Report from Study
  Country: US (occurrence: US)
  Receive Date: 20141029
  Receipt Date: 20141029
  Transmission Date: 20150529
  Serious: Yes (Hospitalization)
  Sender: FDA-Public Use
  Company Number: US-SANOFI-AVENTIS-2013SA087066

PATIENT
  Age: 66 Year
  Sex: Female

DRUGS (2)
  1. AUBAGIO [Suspect]
     Active Substance: TERIFLUNOMIDE
     Indication: MULTIPLE SCLEROSIS
     Route: 048
     Dates: start: 20140128
  2. AUBAGIO [Suspect]
     Active Substance: TERIFLUNOMIDE
     Indication: MULTIPLE SCLEROSIS
     Route: 048
     Dates: start: 20130813, end: 20140115

REACTIONS (20)
  - Nasal discomfort [Not Recovered/Not Resolved]
  - Headache [Recovered/Resolved]
  - Lung disorder [Unknown]
  - Neck injury [Not Recovered/Not Resolved]
  - Mood swings [Not Recovered/Not Resolved]
  - Muscle spasticity [Unknown]
  - Gait disturbance [Not Recovered/Not Resolved]
  - Back injury [Not Recovered/Not Resolved]
  - Panic attack [Unknown]
  - Palpitations [Unknown]
  - Fall [Not Recovered/Not Resolved]
  - Dyspnoea [Unknown]
  - Memory impairment [Not Recovered/Not Resolved]
  - Eye injury [Not Recovered/Not Resolved]
  - Rash [Not Recovered/Not Resolved]
  - Gastrointestinal disorder [Unknown]
  - Muscle spasms [Unknown]
  - Periorbital contusion [Not Recovered/Not Resolved]
  - Fatigue [Not Recovered/Not Resolved]
  - Nervousness [Not Recovered/Not Resolved]

NARRATIVE: CASE EVENT DATE: 20130914
